FAERS Safety Report 6818449-6 (Version None)
Quarter: 2010Q3

REPORT INFORMATION
  Report Type: 
  Country: None (occurrence: None)
  Receive Date: 20100706
  Receipt Date: 20080325
  Transmission Date: 20110219
  Serious: No
  Sender: FDA-Public Use
  Company Number: US-PFIZER INC-2008027871

PATIENT
  Sex: Female

DRUGS (1)
  1. AZITHROMYCIN [Suspect]
     Route: 048
     Dates: start: 20080325

REACTIONS (2)
  - ABDOMINAL PAIN UPPER [None]
  - DRUG DISPENSING ERROR [None]
